FAERS Safety Report 8840082 (Version 5)
Quarter: 2012Q4

REPORT INFORMATION
  Report Type: 
  Country: US (occurrence: US)
  Receive Date: 20121015
  Receipt Date: 20121221
  Transmission Date: 20130627
  Serious: Yes (Death, Hospitalization, Other)
  Sender: FDA-Public Use
  Company Number: US-GILEAD-2012-0062935

PATIENT
  Age: 55 Year
  Sex: Female

DRUGS (5)
  1. LETAIRIS [Suspect]
     Indication: PULMONARY ARTERIAL HYPERTENSION
     Dosage: 10 mg, QD
     Route: 048
     Dates: start: 20090115
  2. LETAIRIS [Suspect]
     Dosage: 10 mg, QD
  3. VELETRI [Concomitant]
     Dates: start: 20120815
  4. ADCIRCA [Concomitant]
     Dosage: 40 mg, QD
     Dates: start: 20120104
  5. FLOLAN [Concomitant]

REACTIONS (6)
  - Death [Fatal]
  - Organ failure [Unknown]
  - Terminal state [Unknown]
  - Hospice care [Unknown]
  - Pulmonary arterial hypertension [Unknown]
  - Condition aggravated [Unknown]
